FAERS Safety Report 20318803 (Version 1)
Quarter: 2022Q1

REPORT INFORMATION
  Report Type: Spontaneous
  Country: US (occurrence: None)
  Receive Date: 20220109
  Receipt Date: 20220109
  Transmission Date: 20220424
  Serious: Yes (Other)
  Sender: FDA-Public Use
  Company Number: None

PATIENT
  Age: 79 Year
  Sex: Male
  Weight: 83.25 kg

DRUGS (16)
  1. RYBELSUS [Suspect]
     Active Substance: SEMAGLUTIDE
     Indication: Diabetes mellitus
     Dosage: OTHER QUANTITY : 1 TABLET(S);?FREQUENCY : DAILY;?
     Route: 048
  2. BRIMONIDINE [Concomitant]
     Active Substance: BRIMONIDINE TARTRATE
  3. TRADJENTA [Concomitant]
     Active Substance: LINAGLIPTIN
  4. PIOGLITAZONE [Concomitant]
     Active Substance: PIOGLITAZONE
  5. HYDROCHLOROTHIAZIDE [Concomitant]
     Active Substance: HYDROCHLOROTHIAZIDE
  6. LISINOPRIL [Concomitant]
     Active Substance: LISINOPRIL
  7. GLIMEPIRIDE [Concomitant]
     Active Substance: GLIMEPIRIDE
  8. BERBERINE [Concomitant]
     Active Substance: BERBERINE
  9. KRILL OIL [Concomitant]
     Active Substance: DIETARY SUPPLEMENT\KRILL OIL
  10. Herba Vision with Lutein [Concomitant]
  11. ZINC [Concomitant]
     Active Substance: ZINC
  12. FOLIC ACID [Concomitant]
     Active Substance: FOLIC ACID
  13. Vitamn d3 [Concomitant]
  14. b-Coomplex [Concomitant]
  15. Niacin Inositol [Concomitant]
  16. Men^s 50+ Multi-Vitamin [Concomitant]

REACTIONS (3)
  - Abdominal distension [None]
  - Diarrhoea [None]
  - Constipation [None]

NARRATIVE: CASE EVENT DATE: 20210812
